FAERS Safety Report 9248743 (Version 4)
Quarter: 2013Q4

REPORT INFORMATION
  Report Type: Report from Study
  Country: BR (occurrence: BR)
  Receive Date: 20130423
  Receipt Date: 20131001
  Transmission Date: 20140711
  Serious: Yes (Hospitalization)
  Sender: FDA-Public Use
  Company Number: BR-ROCHE-1212823

PATIENT
  Age: 45 Year
  Sex: Female
  Weight: 60 kg

DRUGS (6)
  1. MABTHERA [Suspect]
     Indication: RHEUMATOID ARTHRITIS
     Dosage: LAST DOSE RECEIVED: 20/MAR/2012
     Route: 042
     Dates: start: 20101001
  2. PREDNISONE [Concomitant]
  3. METHOTREXATE [Concomitant]
  4. HUMIRA [Concomitant]
  5. ETANERCEPT [Concomitant]
  6. METICORTEN [Concomitant]

REACTIONS (3)
  - Foot deformity [Recovered/Resolved]
  - Sinusitis [Unknown]
  - Allergy to chemicals [Recovering/Resolving]
